FAERS Safety Report 6321788-9 (Version None)
Quarter: 2009Q3

REPORT INFORMATION
  Report Type: 
  Country: None (occurrence: None)
  Receive Date: 20090824
  Receipt Date: 20090811
  Transmission Date: 20100115
  Serious: Yes (Other)
  Sender: FDA-Public Use
  Company Number: GB-ROCHE-650986

PATIENT
  Age: 15 Month
  Sex: Male

DRUGS (1)
  1. TAMIFLU [Suspect]
     Indication: INFLUENZA
     Route: 065

REACTIONS (5)
  - DECREASED APPETITE [None]
  - HALLUCINATION [None]
  - NIGHTMARE [None]
  - PYREXIA [None]
  - VOMITING [None]
